FAERS Safety Report 9337842 (Version 1)
Quarter: 2013Q2

REPORT INFORMATION
  Report Type: Spontaneous
  Country: NL (occurrence: NL)
  Receive Date: 20130607
  Receipt Date: 20130607
  Transmission Date: 20140414
  Serious: Yes (Other)
  Sender: FDA-Public Use
  Company Number: NL-B.I. PHARMACEUTICALS,INC./RIDGEFIELD-2013-BI-16414YA

PATIENT
  Age: 69 Year
  Sex: Male
  Weight: 98 kg

DRUGS (2)
  1. TAMSULOSIN [Suspect]
     Indication: FLUID RETENTION
     Dosage: 0.4 MG
     Route: 065
     Dates: start: 20130315
  2. AMOXICILLIN/CLAVULANIC ACID [Concomitant]
     Dosage: STRENGTH: 500/125MG, DAILY DOSE: 1500/375MG
     Dates: start: 20130222, end: 20130507

REACTIONS (2)
  - Confusional state [Not Recovered/Not Resolved]
  - Memory impairment [Not Recovered/Not Resolved]
